FAERS Safety Report 6575811-7 (Version None)
Quarter: 2010Q1

REPORT INFORMATION
  Report Type: 
  Country: None (occurrence: None)
  Receive Date: 20100208
  Receipt Date: 20100208
  Transmission Date: 20100710
  Serious: Yes (Other)
  Sender: FDA-Public Use
  Company Number: None

PATIENT
  Age: 48 Year
  Sex: Female
  Weight: 70.3075 kg

DRUGS (2)
  1. FLUOROMETHOLONE [Suspect]
     Indication: EYE DISORDER
     Dosage: ONE DROP EACH EYE TWICE DAILY OPHTHALMIC
     Route: 047
     Dates: start: 20100129, end: 20100205
  2. FLUOROMETHOLONE [Suspect]
     Indication: ROSACEA
     Dosage: ONE DROP EACH EYE TWICE DAILY OPHTHALMIC
     Route: 047
     Dates: start: 20100129, end: 20100205

REACTIONS (4)
  - ERYTHEMA [None]
  - RASH [None]
  - SCAR [None]
  - URTICARIA [None]
